FAERS Safety Report 23982449 (Version 1)
Quarter: 2024Q2

REPORT INFORMATION
  Report Type: Spontaneous
  Country: US (occurrence: US)
  Receive Date: 20240617
  Receipt Date: 20240617
  Transmission Date: 20240716
  Serious: No
  Sender: FDA-Public Use
  Company Number: US-Calliditas-2024CAL00967

PATIENT
  Age: 25 Year
  Sex: Male

DRUGS (1)
  1. TARPEYO [Suspect]
     Active Substance: BUDESONIDE
     Indication: IgA nephropathy
     Route: 048
     Dates: start: 20240424

REACTIONS (4)
  - Swelling [Recovered/Resolved]
  - Prescribed underdose [Unknown]
  - Pain [Recovered/Resolved]
  - Feeling abnormal [Recovered/Resolved]
